FAERS Safety Report 14336800 (Version 1)
Quarter: 2017Q4

REPORT INFORMATION
  Report Type: Report from Study
  Country: PH (occurrence: PH)
  Receive Date: 20171229
  Receipt Date: 20171229
  Transmission Date: 20180321
  Serious: Yes (Death, Hospitalization)
  Sender: FDA-Public Use
  Company Number: PH-INCYTE CORPORATION-2017IN010255

PATIENT

DRUGS (1)
  1. JAKAVI [Suspect]
     Active Substance: RUXOLITINIB
     Indication: JANUS KINASE 2 MUTATION
     Dosage: 5 MG, BID
     Route: 048
     Dates: start: 20161104

REACTIONS (6)
  - Product use in unapproved indication [Unknown]
  - Pulmonary congestion [Unknown]
  - Tachycardia [Unknown]
  - Pneumonia [Recovered/Resolved]
  - Rheumatic heart disease [Unknown]
  - Death [Fatal]

NARRATIVE: CASE EVENT DATE: 20161202
